FAERS Safety Report 18461630 (Version 1)
Quarter: 2020Q4

REPORT INFORMATION
  Report Type: Spontaneous
  Country: US (occurrence: US)
  Receive Date: 20201103
  Receipt Date: 20201103
  Transmission Date: 20210114
  Serious: Yes (Hospitalization, Other)
  Sender: FDA-Public Use
  Company Number: None

PATIENT
  Age: 56 Year
  Sex: Female

DRUGS (8)
  1. BUPROPN HCL [Concomitant]
     Active Substance: BUPROPION HYDROCHLORIDE
  2. HYDROCO/APAP [Concomitant]
     Active Substance: ACETAMINOPHEN\HYDROCODONE
  3. ALPRAZOLAM. [Concomitant]
     Active Substance: ALPRAZOLAM
  4. ALBUTEROL. [Concomitant]
     Active Substance: ALBUTEROL
  5. AZITHROMYCIN ANHYDROUS. [Concomitant]
     Active Substance: AZITHROMYCIN ANHYDROUS
  6. METHOTREXATE. [Concomitant]
     Active Substance: METHOTREXATE
  7. ONDANSETRON [Concomitant]
     Active Substance: ONDANSETRON
  8. CIMZIA [Suspect]
     Active Substance: CERTOLIZUMAB PEGOL
     Indication: PSORIATIC ARTHROPATHY
     Dosage: ?          OTHER FREQUENCY:WEEKS 0,2, + 4;?
     Route: 058
     Dates: start: 20200826

REACTIONS (1)
  - Nasal operation [None]

NARRATIVE: CASE EVENT DATE: 20201026
